FAERS Safety Report 9010562 (Version 1)
Quarter: 2013Q1

REPORT INFORMATION
  Report Type: Spontaneous
  Country: GB (occurrence: GB)
  Receive Date: 20130111
  Receipt Date: 20130111
  Transmission Date: 20140127
  Serious: Yes (Other)
  Sender: FDA-Public Use
  Company Number: GB-ELI_LILLY_AND_COMPANY-GB201301003229

PATIENT
  Age: 51 Year
  Sex: Male

DRUGS (1)
  1. GEMZAR [Suspect]
     Indication: PANCREATIC CARCINOMA METASTATIC

REACTIONS (5)
  - Neutropenia [Unknown]
  - Abdominal pain [Unknown]
  - Pain [Unknown]
  - Arthralgia [Unknown]
  - Myalgia [Unknown]
